FAERS Safety Report 8408773-8 (Version None)
Quarter: 2012Q2

REPORT INFORMATION
  Report Type: 
  Country: None (occurrence: None)
  Receive Date: 20120604
  Receipt Date: 20120522
  Transmission Date: 20120825
  Serious: Yes (Other)
  Sender: FDA-Public Use
  Company Number: US-ELI_LILLY_AND_COMPANY-US201205008549

PATIENT
  Age: 50 Year
  Sex: Female

DRUGS (2)
  1. ATIVAN [Concomitant]
  2. CYMBALTA [Suspect]
     Indication: DEPRESSION
     Dosage: 120 MG, UNKNOWN
     Dates: start: 20110101

REACTIONS (1)
  - BLINDNESS [None]
